FAERS Safety Report 15186430 (Version 2)
Quarter: 2018Q4

REPORT INFORMATION
  Report Type: Report from Study
  Country: US (occurrence: US)
  Receive Date: 20180723
  Receipt Date: 20181018
  Transmission Date: 20190204
  Serious: Yes (Hospitalization, Disabling, Other)
  Sender: FDA-Public Use
  Company Number: US-EXELIXIS-CABO-18013444

PATIENT
  Sex: Male

DRUGS (10)
  1. LEVEMIR [Concomitant]
     Active Substance: INSULIN DETEMIR
  2. CABOMETYX [Suspect]
     Active Substance: CABOZANTINIB S-MALATE
     Indication: RENAL CANCER
     Dosage: 20 MG, QD
     Route: 048
     Dates: start: 20170707, end: 2018
  3. JANUMET [Concomitant]
     Active Substance: METFORMIN HYDROCHLORIDE\SITAGLIPTIN PHOSPHATE
  4. TRAMADOL. [Concomitant]
     Active Substance: TRAMADOL
  5. CABOMETYX [Suspect]
     Active Substance: CABOZANTINIB S-MALATE
     Dosage: 20 MG, QD
     Route: 048
     Dates: start: 2018, end: 2018
  6. GABAPENTIN. [Concomitant]
     Active Substance: GABAPENTIN
  7. ATENOLOL. [Concomitant]
     Active Substance: ATENOLOL
  8. BYDUREON [Concomitant]
     Active Substance: EXENATIDE
  9. OMEPRAZOLE. [Concomitant]
     Active Substance: OMEPRAZOLE
  10. ZOLPIDEM TARTRATE. [Concomitant]
     Active Substance: ZOLPIDEM TARTRATE

REACTIONS (6)
  - Postoperative thoracic procedure complication [Unknown]
  - Tracheal haemorrhage [Unknown]
  - Cerebrovascular accident [Unknown]
  - Paraplegia [Unknown]
  - Metastases to lung [Unknown]
  - Pain [Unknown]
